FAERS Safety Report 23894279 (Version 1)
Quarter: 2024Q2

REPORT INFORMATION
  Report Type: Spontaneous
  Country: US (occurrence: US)
  Receive Date: 20240524
  Receipt Date: 20240524
  Transmission Date: 20240715
  Serious: No
  Sender: FDA-Public Use
  Company Number: US-COSETTE-CP2024US000079

PATIENT
  Age: 62 Year
  Sex: Female

DRUGS (1)
  1. VYLEESI [Suspect]
     Active Substance: BREMELANOTIDE ACETATE
     Indication: Libido decreased
     Dosage: USED ONLY 02 AUTO-INJECTORS
     Route: 058

REACTIONS (1)
  - Headache [Recovered/Resolved]
